FAERS Safety Report 6305881-2 (Version None)
Quarter: 2009Q3

REPORT INFORMATION
  Report Type: 
  Country: None (occurrence: None)
  Receive Date: 20090812
  Receipt Date: 20090803
  Transmission Date: 20100115
  Serious: Yes (Life-Threatening, Other)
  Sender: FDA-Public Use
  Company Number: US-MYLANLABS-2009S1011246

PATIENT
  Age: 47 Year
  Sex: Female
  Weight: 90.72 kg

DRUGS (11)
  1. CYCLOBENZAPRINE HCL [Suspect]
     Indication: RHEUMATOID ARTHRITIS
     Route: 048
     Dates: start: 20090429, end: 20090429
  2. AMITRIPTYLINE HCL [Suspect]
     Dates: start: 20080101
  3. LORCET-HD [Suspect]
     Dates: start: 20080101
  4. SOMA [Suspect]
     Dosage: 2-3 QD
     Dates: start: 20050101
  5. XANAX [Suspect]
     Dates: start: 20080101
  6. LYRICA [Suspect]
     Dates: start: 20090407
  7. ATENOLOL [Concomitant]
     Dates: start: 20060101
  8. HYDROCHLOROTHIAZIDE [Concomitant]
     Dates: start: 20060101
  9. FLUTICASONE PROPIONATE [Concomitant]
  10. PROTONIX [Concomitant]
     Route: 048
  11. ALLEGRA [Concomitant]
     Route: 048

REACTIONS (8)
  - DEPRESSED LEVEL OF CONSCIOUSNESS [None]
  - DRUG TOXICITY [None]
  - DYSPNOEA [None]
  - MEMORY IMPAIRMENT [None]
  - SOMNOLENCE [None]
  - URINARY INCONTINENCE [None]
  - URINARY RETENTION [None]
  - VOMITING [None]
